FAERS Safety Report 10978723 (Version 1)
Quarter: 2015Q2

REPORT INFORMATION
  Report Type: Spontaneous
  Country: FR (occurrence: FR)
  Receive Date: 20150402
  Receipt Date: 20150402
  Transmission Date: 20150821
  Serious: Yes (Hospitalization)
  Sender: FDA-Public Use
  Company Number: FR-PFIZER INC-2015111658

PATIENT
  Age: 52 Year
  Sex: Female

DRUGS (4)
  1. TOPREC [Suspect]
     Active Substance: KETOPROFEN
     Dosage: UNK, AS NEEDED
     Route: 048
  2. DAFALGAN [Suspect]
     Active Substance: ACETAMINOPHEN
     Dosage: UNK, AS NEEDED
     Route: 048
  3. ADVIL [Suspect]
     Active Substance: IBUPROFEN
     Dosage: UNK, AS NEEDED
     Route: 048
  4. PIROXICAM. [Suspect]
     Active Substance: PIROXICAM
     Dosage: UNK, AS NEEDED
     Route: 048
     Dates: end: 201412

REACTIONS (2)
  - Transaminases increased [Not Recovered/Not Resolved]
  - Hepatic fibrosis [Not Recovered/Not Resolved]

NARRATIVE: CASE EVENT DATE: 2014
